FAERS Safety Report 13778440 (Version 1)
Quarter: 2017Q3

REPORT INFORMATION
  Report Type: Spontaneous
  Country: US (occurrence: US)
  Receive Date: 20170721
  Receipt Date: 20170721
  Transmission Date: 20171127
  Serious: Yes (Other)
  Sender: FDA-Public Use
  Company Number: US-TEVA-787738USA

PATIENT
  Age: 29 Year
  Sex: Male

DRUGS (4)
  1. BUPRENORPHINE W/NALOXONE [Suspect]
     Active Substance: BUPRENORPHINE HYDROCHLORIDE\NALOXONE HYDROCHLORIDE
     Dosage: 12MG DAILY
     Route: 065
  2. GABAPENTIN. [Interacting]
     Active Substance: GABAPENTIN
     Route: 065
  3. PHENIBUT [Suspect]
     Active Substance: DIETARY SUPPLEMENT
     Indication: DRUG USE DISORDER
     Dosage: 100G EVERY 7 DAYS, FOR APPROX. 4 MONTHS ON DAILY BASIS
     Route: 065
  4. PHENOBARBITAL. [Suspect]
     Active Substance: PHENOBARBITAL
     Indication: OFF LABEL USE
     Dosage: 64.8MG QID IN THE FIRST 24 HOURS
     Route: 065

REACTIONS (11)
  - Myalgia [Unknown]
  - Mood altered [Unknown]
  - Tremor [Unknown]
  - Drug dependence [Not Recovered/Not Resolved]
  - Condition aggravated [Unknown]
  - Withdrawal syndrome [Unknown]
  - Somnolence [Unknown]
  - Off label use [Unknown]
  - Drug abuse [Unknown]
  - Drug interaction [Unknown]
  - Anxiety [Unknown]
